FAERS Safety Report 17577186 (Version 1)
Quarter: 2020Q1

REPORT INFORMATION
  Report Type: Spontaneous
  Country: US (occurrence: US)
  Receive Date: 20200324
  Receipt Date: 20200324
  Transmission Date: 20200409
  Serious: Yes (Hospitalization)
  Sender: FDA-Public Use
  Company Number: US-PRINSTON PHARMACEUTICAL INC.-2020PRN00089

PATIENT
  Sex: Male

DRUGS (5)
  1. CLONAZEPAM. [Suspect]
     Active Substance: CLONAZEPAM
     Indication: DEPRESSION
  2. CLONAZEPAM. [Suspect]
     Active Substance: CLONAZEPAM
     Indication: ILL-DEFINED DISORDER
  3. CLONAZEPAM. [Suspect]
     Active Substance: CLONAZEPAM
     Indication: SCHIZOPHRENIA
  4. CLONAZEPAM. [Suspect]
     Active Substance: CLONAZEPAM
     Indication: SPINA BIFIDA
     Dosage: 1 MG, 2X/DAY IN THE MORNING AND AT NIGHT
     Route: 048
     Dates: start: 1997
  5. CLONAZEPAM. [Suspect]
     Active Substance: CLONAZEPAM
     Indication: ANXIETY

REACTIONS (5)
  - Headache [Unknown]
  - Off label use [Recovered/Resolved]
  - Bruxism [Not Recovered/Not Resolved]
  - Hospitalisation [Recovered/Resolved]
  - Unevaluable event [Not Recovered/Not Resolved]

NARRATIVE: CASE EVENT DATE: 1997
